FAERS Safety Report 8334842-7 (Version None)
Quarter: 2012Q2

REPORT INFORMATION
  Report Type: 
  Country: None (occurrence: None)
  Receive Date: 20120503
  Receipt Date: 20120425
  Transmission Date: 20120825
  Serious: Yes (Other)
  Sender: FDA-Public Use
  Company Number: BR-BAYER-2012-041559

PATIENT
  Sex: Female

DRUGS (1)
  1. YAZ [Suspect]
     Indication: PREOPERATIVE HORMONE TREATMENT
     Dosage: UNK
     Route: 048
     Dates: start: 20120301

REACTIONS (1)
  - SURGERY [None]
